FAERS Safety Report 5131196-4 (Version None)
Quarter: 2006Q4

REPORT INFORMATION
  Report Type: 
  Country: None (occurrence: None)
  Receive Date: 20061016
  Receipt Date: 20061005
  Transmission Date: 20070319
  Serious: Yes (Hospitalization, Other)
  Sender: FDA-Public Use
  Company Number: 2006BH013785

PATIENT
  Age: 76 Year
  Sex: Male
  Weight: 76.6 kg

DRUGS (1)
  1. DIANEAL [Suspect]
     Indication: RENAL FAILURE CHRONIC
     Dosage: IP
     Route: 033

REACTIONS (8)
  - CHEST PAIN [None]
  - DEVICE LEAKAGE [None]
  - DEVICE RELATED INFECTION [None]
  - MEAN CELL VOLUME INCREASED [None]
  - PERITONITIS [None]
  - RED CELL DISTRIBUTION WIDTH INCREASED [None]
  - SEPSIS PASTEURELLA [None]
  - VECTOR-BORNE TRANSMISSION OF INFECTION [None]
